FAERS Safety Report 6424527-6 (Version None)
Quarter: 2009Q4

REPORT INFORMATION
  Report Type: 
  Country: None (occurrence: None)
  Receive Date: 20091103
  Receipt Date: 20091027
  Transmission Date: 20100525
  Serious: Yes (Other)
  Sender: FDA-Public Use
  Company Number: JP-ROCHE-665031

PATIENT
  Age: 3 Month
  Sex: Female

DRUGS (5)
  1. DENOSINE IV [Suspect]
     Indication: CYTOMEGALOVIRUS INFECTION
     Dosage: DOSE FORM: INFUSION
     Route: 042
  2. IFOSFAMIDE [Concomitant]
  3. ETOPOSIDE [Concomitant]
  4. BUSULFAN [Concomitant]
  5. THIOTEPA [Concomitant]

REACTIONS (2)
  - GASTROINTESTINAL DISORDER [None]
  - PYREXIA [None]
